FAERS Safety Report 21923050 (Version 2)
Quarter: 2023Q1

REPORT INFORMATION
  Report Type: Other
  Country: AU (occurrence: AU)
  Receive Date: 20230129
  Receipt Date: 20230201
  Transmission Date: 20230417
  Serious: Yes (Hospitalization, Other)
  Sender: FDA-Public Use
  Company Number: AU-DEXPHARM-20230148

PATIENT
  Age: 66 Year
  Sex: Male

DRUGS (8)
  1. LITHIUM [Suspect]
     Active Substance: LITHIUM
  2. VENLAFAXINE [Suspect]
     Active Substance: VENLAFAXINE HYDROCHLORIDE
  3. METFORMIN [Suspect]
     Active Substance: METFORMIN HYDROCHLORIDE
  4. OLMESARTAN MEDOXOMIL [Suspect]
     Active Substance: OLMESARTAN MEDOXOMIL
  5. MIRTAZAPINE [Suspect]
     Active Substance: MIRTAZAPINE
  6. ARIPIPRAZOLE [Suspect]
     Active Substance: ARIPIPRAZOLE
  7. EMPAGLIFLOZIN [Suspect]
     Active Substance: EMPAGLIFLOZIN
  8. ROSUVASTATIN [Suspect]
     Active Substance: ROSUVASTATIN

REACTIONS (5)
  - Toxicity to various agents [Recovering/Resolving]
  - Nephrogenic diabetes insipidus [Not Recovered/Not Resolved]
  - Acute kidney injury [Unknown]
  - Hypovolaemia [Unknown]
  - Neurotoxicity [Unknown]
